FAERS Safety Report 9668779 (Version 1)
Quarter: 2013Q4

REPORT INFORMATION
  Report Type: Spontaneous
  Country: FR (occurrence: FR)
  Receive Date: 20131105
  Receipt Date: 20131105
  Transmission Date: 20140711
  Serious: Yes (Hospitalization)
  Sender: FDA-Public Use
  Company Number: FR-JNJFOC-20131017460

PATIENT
  Age: 56 Year
  Sex: Female

DRUGS (3)
  1. HALDOL [Suspect]
     Indication: AGITATION
     Route: 048
     Dates: start: 20130509, end: 20130610
  2. CARBAMAZEPINE [Suspect]
     Indication: AGITATION
     Route: 048
     Dates: start: 20130610, end: 20130719
  3. LAMICTAL [Concomitant]
     Indication: PRODUCT USED FOR UNKNOWN INDICATION
     Route: 065
     Dates: start: 20130711

REACTIONS (5)
  - Drug reaction with eosinophilia and systemic symptoms [Recovered/Resolved]
  - Subarachnoid haemorrhage [Unknown]
  - Asthenia [Unknown]
  - Myalgia [Unknown]
  - Hepatocellular injury [Unknown]
